FAERS Safety Report 6983658-2 (Version None)
Quarter: 2010Q3

REPORT INFORMATION
  Report Type: 
  Country: None (occurrence: None)
  Receive Date: 20100914
  Receipt Date: 20081028
  Transmission Date: 20110219
  Serious: Yes (Hospitalization)
  Sender: FDA-Public Use
  Company Number: US-WYE-H06608008

PATIENT

DRUGS (1)
  1. TYGACIL [Suspect]
     Indication: DIVERTICULAR PERFORATION
     Dosage: UNKNOWN
     Route: 042

REACTIONS (2)
  - BLOOD BILIRUBIN INCREASED [None]
  - JAUNDICE [None]
